FAERS Safety Report 8549822-6 (Version None)
Quarter: 2012Q3

REPORT INFORMATION
  Report Type: 
  Country: None (occurrence: None)
  Receive Date: 20120718
  Receipt Date: 20120706
  Transmission Date: 20120928
  Serious: Yes (Other)
  Sender: FDA-Public Use
  Company Number: DSA_58466_2012

PATIENT
  Sex: Female
  Weight: 56.6996 kg

DRUGS (5)
  1. ATORVASTATIN CALCIUM [Suspect]
     Indication: BLOOD CHOLESTEROL
     Dosage: 20 MG QD ORAL
     Route: 048
     Dates: start: 20070101
  2. LISINOPRIL [Suspect]
     Indication: HYPERTENSION
     Dosage: 20 MG QD ORAL
     Route: 048
     Dates: start: 20090101
  3. DILTIAZEM HCL [Suspect]
     Indication: PRODUCT USED FOR UNKNOWN INDICATION
     Dosage: (DF)
  4. REMICADE [Suspect]
     Indication: RHEUMATOID ARTHRITIS
     Dosage: (DF INTRAVENOUS (NOT OTHERWISE SPECIFIED))
     Route: 042
  5. METHOTREXATE [Suspect]
     Indication: RHEUMATOID ARTHRITIS
     Dosage: 2.5 MG 3X/WEEK
     Dates: start: 20020101

REACTIONS (7)
  - OEDEMA PERIPHERAL [None]
  - HYPERTENSION [None]
  - PRURITUS [None]
  - RASH MACULAR [None]
  - JOINT SWELLING [None]
  - BLOOD CHOLESTEROL INCREASED [None]
  - DRUG ERUPTION [None]
